FAERS Safety Report 5732663-2 (Version None)
Quarter: 2008Q2

REPORT INFORMATION
  Report Type: 
  Country: None (occurrence: None)
  Receive Date: 20080509
  Receipt Date: 20080507
  Transmission Date: 20081010
  Serious: Yes (Other)
  Sender: FDA-Public Use
  Company Number: US-RANBAXY-2008US-14934

PATIENT

DRUGS (2)
  1. ISOTRETINOIN [Suspect]
     Indication: ACNE
     Dosage: 40 MG, UNK
     Route: 048
     Dates: start: 20071228, end: 20080404
  2. ISOTRETINOIN [Suspect]
     Dosage: 20 MG, UNK
     Route: 048
     Dates: start: 20071228, end: 20080404

REACTIONS (2)
  - RECTAL FISSURE [None]
  - RECTAL HAEMORRHAGE [None]
